FAERS Safety Report 12240316 (Version 2)
Quarter: 2016Q2

REPORT INFORMATION
  Report Type: Spontaneous
  Country: US (occurrence: US)
  Receive Date: 20160405
  Receipt Date: 20160420
  Transmission Date: 20160815
  Serious: Yes (Hospitalization)
  Sender: FDA-Public Use
  Company Number: US-PFIZER INC-2016151526

PATIENT
  Age: 58 Year
  Sex: Female

DRUGS (14)
  1. LYRICA [Suspect]
     Active Substance: PREGABALIN
     Indication: NEUROPATHY PERIPHERAL
     Dosage: 250 MG, 2X/DAY
     Dates: start: 2005
  2. LASIX [Suspect]
     Active Substance: FUROSEMIDE
     Indication: FLUID RETENTION
     Dosage: 40 MG, 1X/DAY
     Dates: start: 2005
  3. ESTRACE [Suspect]
     Active Substance: ESTRADIOL
     Indication: HORMONE THERAPY
     Dosage: 1 MG, 1X/DAY
     Dates: start: 1997
  4. CALCIUM CITRATE + D W/MAGNESIUM [Concomitant]
     Dosage: 500MG, 2 PILLS A DAY
     Dates: start: 2005
  5. VITAMIN D [Concomitant]
     Active Substance: CHOLECALCIFEROL
     Dosage: 5000 IU, 2X/DAY
  6. DOXYCYCLINE. [Concomitant]
     Active Substance: DOXYCYCLINE
     Dosage: 100 MG, 2X/DAY
  7. ALDACTONE [Suspect]
     Active Substance: SPIRONOLACTONE
     Indication: FLUID RETENTION
     Dosage: UNK, 1X/DAY
     Dates: start: 2005
  8. DULOXETINE. [Suspect]
     Active Substance: DULOXETINE
     Indication: DEPRESSION
     Dosage: 120 MG, 1X/DAY (60 MG 2 PILLS ONCE A DAY)
     Dates: start: 2010
  9. KLOR-CON [Concomitant]
     Active Substance: POTASSIUM CHLORIDE
     Indication: BLOOD POTASSIUM DECREASED
     Dosage: 40 MEQ, 2X/DAY
     Dates: start: 2010
  10. CEPHALEXIN. [Concomitant]
     Active Substance: CEPHALEXIN
     Dosage: 500 MG, 4X/DAY
  11. VITAMIN B12 [Concomitant]
     Active Substance: CYANOCOBALAMIN
     Dosage: 3000 UG, 2X/DAY
  12. LYRICA [Suspect]
     Active Substance: PREGABALIN
     Indication: TARSAL TUNNEL SYNDROME
  13. VANCOMYCIN [Concomitant]
     Active Substance: VANCOMYCIN
     Dosage: 125 MG, 4X/DAY
  14. ALLERGY A + D [Concomitant]
     Dosage: 10,000 IU (D3) 1 PILL TWICE A DAY

REACTIONS (4)
  - Peripheral swelling [Not Recovered/Not Resolved]
  - Weight increased [Not Recovered/Not Resolved]
  - Infection [Not Recovered/Not Resolved]
  - Prescription drug used without a prescription [Not Recovered/Not Resolved]
